FAERS Safety Report 4342045-6 (Version None)
Quarter: 2004Q2

REPORT INFORMATION
  Report Type: 
  Country: None (occurrence: None)
  Receive Date: 20040415
  Receipt Date: 20040401
  Transmission Date: 20050107
  Serious: Yes (Hospitalization)
  Sender: FDA-Public Use
  Company Number: CIP02000977

PATIENT
  Age: 66 Year
  Sex: Female

DRUGS (6)
  1. MACRODANTIN [Suspect]
     Indication: PROPHYLAXIS
     Dosage: SEE IMAGE
     Route: 048
     Dates: start: 20020101, end: 20020101
  2. MACRODANTIN [Suspect]
     Indication: PROPHYLAXIS
     Dosage: SEE IMAGE
     Route: 048
     Dates: start: 20020101, end: 20020201
  3. PREVACID [Concomitant]
  4. REGLAN [Concomitant]
  5. FLONASE [Concomitant]
  6. NEXIUM [Concomitant]

REACTIONS (4)
  - CRYPTOGENIC ORGANIZING PNEUMONIA [None]
  - LUNG DISORDER [None]
  - RIB FRACTURE [None]
  - SINUSITIS [None]
